FAERS Safety Report 14847278 (Version 3)
Quarter: 2021Q3

REPORT INFORMATION
  Report Type: Spontaneous
  Country: US (occurrence: US)
  Receive Date: 20180504
  Receipt Date: 20210820
  Transmission Date: 20211014
  Serious: No
  Sender: FDA-Public Use
  Company Number: US-PFIZER INC-2018184922

PATIENT
  Age: 72 Year
  Sex: Female

DRUGS (1)
  1. PREMARIN [Suspect]
     Active Substance: ESTROGENS, CONJUGATED
     Indication: OESTROGEN THERAPY
     Dosage: 0.625 MG, 1X/DAY
     Dates: start: 1993

REACTIONS (5)
  - Product administration error [Unknown]
  - Poor quality product administered [Unknown]
  - Product storage error [Unknown]
  - Paraesthesia [Unknown]
  - Fibromyalgia [Unknown]
